FAERS Safety Report 7506482-0 (Version None)
Quarter: 2011Q2

REPORT INFORMATION
  Report Type: 
  Country: None (occurrence: None)
  Receive Date: 20110526
  Receipt Date: 20110519
  Transmission Date: 20111010
  Serious: Yes (Hospitalization)
  Sender: FDA-Public Use
  Company Number: US-ACTELION-A-US2011-49059

PATIENT

DRUGS (3)
  1. COUMADIN [Concomitant]
  2. TRACLEER [Suspect]
     Indication: PULMONARY ARTERIAL HYPERTENSION
     Dosage: UNK
     Route: 048
     Dates: start: 20101209, end: 20110421
  3. CALCIUM CHANNEL BLOCKERS [Concomitant]

REACTIONS (2)
  - ABDOMINAL PAIN [None]
  - HEPATIC ENZYME INCREASED [None]
